FAERS Safety Report 5117457-3 (Version None)
Quarter: 2006Q3

REPORT INFORMATION
  Report Type: 
  Country: None (occurrence: None)
  Receive Date: 20060929
  Receipt Date: 20060915
  Transmission Date: 20061208
  Serious: Yes (Other)
  Sender: FDA-Public Use
  Company Number: US-AMGEN-US193666

PATIENT
  Age: 44 Year
  Sex: Male
  Weight: 58 kg

DRUGS (1)
  1. EPOGEN [Suspect]
     Indication: DIALYSIS
     Route: 058
     Dates: start: 20010501

REACTIONS (6)
  - CONDITION AGGRAVATED [None]
  - INFECTION [None]
  - NEPHROGENIC FIBROSING DERMOPATHY [None]
  - SKIN HYPERTROPHY [None]
  - THERAPEUTIC RESPONSE DECREASED [None]
  - VENTRICULAR TACHYCARDIA [None]
